FAERS Safety Report 19241609 (Version 3)
Quarter: 2021Q3

REPORT INFORMATION
  Report Type: Report from Study
  Country: SG (occurrence: SG)
  Receive Date: 20210511
  Receipt Date: 20210804
  Transmission Date: 20211014
  Serious: Yes (Life-Threatening)
  Sender: FDA-Public Use
  Company Number: SG-SHIONOGI B.V.-2021000187

PATIENT
  Age: 68 Year
  Sex: Female

DRUGS (4)
  1. CEFIDEROCOL. [Suspect]
     Active Substance: CEFIDEROCOL
     Indication: BACTERAEMIA
     Dosage: 1.5 G, PRN8
     Route: 042
     Dates: start: 20210428, end: 20210502
  2. TAZOCIN [Concomitant]
     Active Substance: PIPERACILLIN SODIUM\TAZOBACTAM SODIUM
     Dosage: 4.5 G
     Route: 065
     Dates: start: 20210426, end: 20210428
  3. GEMCITABINE HYDROCHLORIDE. [Concomitant]
     Active Substance: GEMCITABINE HYDROCHLORIDE
     Dosage: UNK
     Route: 065
     Dates: start: 20210423
  4. ABRAXANE [Concomitant]
     Active Substance: PACLITAXEL
     Dosage: UNK
     Route: 065
     Dates: start: 20210423

REACTIONS (1)
  - Neutropenia [Recovered/Resolved]

NARRATIVE: CASE EVENT DATE: 20210502
